FAERS Safety Report 10933951 (Version 2)
Quarter: 2015Q2

REPORT INFORMATION
  Report Type: Report from Study
  Country: AU (occurrence: AU)
  Receive Date: 20150320
  Receipt Date: 20150507
  Transmission Date: 20150821
  Serious: Yes (Hospitalization, Other)
  Sender: FDA-Public Use
  Company Number: PHHY2015AU000566

PATIENT
  Age: 53 Year
  Sex: Male

DRUGS (10)
  1. CLOZARIL [Suspect]
     Active Substance: CLOZAPINE
     Indication: SCHIZOPHRENIA
     Dosage: 575 MG, (100 MG IN MANE+ 475MG IN NOCTE)
     Route: 048
     Dates: start: 20090728, end: 20141230
  2. TETRABENAZINE [Concomitant]
     Active Substance: TETRABENAZINE
     Indication: PRODUCT USED FOR UNKNOWN INDICATION
     Dosage: 2.5 MG, BID
     Route: 065
  3. OLANZAPINE. [Concomitant]
     Active Substance: OLANZAPINE
     Indication: PRODUCT USED FOR UNKNOWN INDICATION
     Dosage: 5 MG, AT NIGHT
     Route: 065
  4. LITHIUM CARBONATE. [Concomitant]
     Active Substance: LITHIUM CARBONATE
     Indication: PRODUCT USED FOR UNKNOWN INDICATION
     Dosage: 500 MG, BID
     Route: 065
  5. PANTOPRAZOLE [Concomitant]
     Active Substance: PANTOPRAZOLE SODIUM
     Indication: PRODUCT USED FOR UNKNOWN INDICATION
     Dosage: 40 MG, NOCTE
     Route: 065
  6. SODIUM VALPROATE [Concomitant]
     Active Substance: VALPROATE SODIUM
     Indication: PRODUCT USED FOR UNKNOWN INDICATION
     Dosage: 1200 MG, AT MORNING AND 700 MG AT NIGHT
     Route: 065
  7. MIRTAZAPINE. [Concomitant]
     Active Substance: MIRTAZAPINE
     Indication: PRODUCT USED FOR UNKNOWN INDICATION
     Dosage: 150 MG, NIGHT
     Route: 065
  8. BENZHEXOL [Concomitant]
     Active Substance: TRIHEXYPHENIDYL
     Indication: PRODUCT USED FOR UNKNOWN INDICATION
     Dosage: 2.5 MG, BID
     Route: 065
  9. PROPRANOLOL [Concomitant]
     Active Substance: PROPRANOLOL\PROPRANOLOL HYDROCHLORIDE
     Indication: PRODUCT USED FOR UNKNOWN INDICATION
     Dosage: 20 MG, MIDDAY
     Route: 065
  10. COLOXYL WITH SENNA [Concomitant]
     Active Substance: DOCUSATE\SENNOSIDES
     Indication: PRODUCT USED FOR UNKNOWN INDICATION
     Dosage: 2 DF, BID
     Route: 065

REACTIONS (62)
  - Seizure [Recovering/Resolving]
  - PO2 increased [Recovered/Resolved]
  - Red blood cell count decreased [Unknown]
  - Antipsychotic drug level above therapeutic [Unknown]
  - Blood creatine phosphokinase increased [Not Recovered/Not Resolved]
  - Aspartate aminotransferase increased [Recovered/Resolved]
  - Hypertonia [Unknown]
  - Aortic valve sclerosis [Unknown]
  - Blood calcium decreased [Unknown]
  - Globulins decreased [Recovered/Resolved]
  - Haematocrit decreased [Unknown]
  - Lymphocyte count decreased [Recovered/Resolved]
  - Hypotension [Unknown]
  - Rhabdomyolysis [Unknown]
  - Hypertrophic cardiomyopathy [Recovering/Resolving]
  - Systolic dysfunction [Unknown]
  - Aortic aneurysm [Unknown]
  - Pulmonary valve incompetence [Unknown]
  - Mitral valve incompetence [Unknown]
  - Aortic valve incompetence [Unknown]
  - Carboxyhaemoglobin increased [Recovered/Resolved]
  - Blood alkaline phosphatase decreased [Recovered/Resolved]
  - Sinus tachycardia [Unknown]
  - Lymphocyte count decreased [Recovered/Resolved]
  - Aspartate aminotransferase increased [Unknown]
  - Hyperreflexia [Unknown]
  - Mitral valve prolapse [Unknown]
  - Drug level decreased [Unknown]
  - Blood creatinine decreased [Recovered/Resolved]
  - Chills [Unknown]
  - Cerebral atrophy [Unknown]
  - Left ventricular hypertrophy [Unknown]
  - Aortic dilatation [Not Recovered/Not Resolved]
  - Tricuspid valve incompetence [Unknown]
  - Oedema peripheral [Unknown]
  - Oxygen saturation increased [Recovered/Resolved]
  - Mean cell volume increased [Unknown]
  - Urinary incontinence [Unknown]
  - Depressed level of consciousness [Unknown]
  - Posture abnormal [Unknown]
  - Gait disturbance [Unknown]
  - Myoclonus [Unknown]
  - Ejection fraction decreased [Recovering/Resolving]
  - Diastolic dysfunction [Unknown]
  - Left atrial dilatation [Unknown]
  - Blood lactate dehydrogenase decreased [Recovered/Resolved]
  - Protein total decreased [Unknown]
  - Antipsychotic drug level increased [Unknown]
  - Eosinophil count increased [Recovered/Resolved]
  - Haemoglobin decreased [Not Recovered/Not Resolved]
  - Neuroleptic malignant syndrome [Recovering/Resolving]
  - Decreased appetite [Unknown]
  - Left ventricular dysfunction [Unknown]
  - Base excess increased [Not Recovered/Not Resolved]
  - Salivary hypersecretion [Unknown]
  - Blood glucose increased [Recovered/Resolved]
  - Mobility decreased [Unknown]
  - Pyrexia [Not Recovered/Not Resolved]
  - Cerebellar atrophy [Unknown]
  - Arteriosclerosis [Unknown]
  - Calcium ionised decreased [Not Recovered/Not Resolved]
  - Blood albumin decreased [Unknown]

NARRATIVE: CASE EVENT DATE: 20100816
